FAERS Safety Report 13950056 (Version 2)
Quarter: 2017Q3

REPORT INFORMATION
  Report Type: Spontaneous
  Country: RU (occurrence: RU)
  Receive Date: 20170908
  Receipt Date: 20170912
  Transmission Date: 20171128
  Serious: Yes (Death)
  Sender: FDA-Public Use
  Company Number: RU-BAYER-2016-013513

PATIENT
  Age: 69 Year
  Sex: Female
  Weight: 67 kg

DRUGS (1)
  1. ULTRAVIST [Suspect]
     Active Substance: IOPROMIDE
     Indication: ARTERIOSCLEROSIS CORONARY ARTERY
     Dosage: 1 DF, UNK
     Route: 042
     Dates: start: 20150915, end: 20150915

REACTIONS (18)
  - Arrhythmia [Fatal]
  - Cardiac failure acute [Fatal]
  - Cardiomyopathy [Fatal]
  - Leukostasis syndrome [Fatal]
  - Cardiovascular disorder [Fatal]
  - Pancreatic necrosis [Fatal]
  - Gastritis erosive [Fatal]
  - Angina pectoris [Fatal]
  - Atrial fibrillation [Fatal]
  - Acute respiratory failure [Fatal]
  - Hyperadrenocorticism [Fatal]
  - Hypotension [Fatal]
  - Myocardial infarction [Fatal]
  - Brain oedema [Fatal]
  - White blood cell count decreased [Fatal]
  - Raynaud^s phenomenon [Fatal]
  - Cardiac failure [Fatal]
  - Myocardial oedema [Fatal]

NARRATIVE: CASE EVENT DATE: 20150915
